FAERS Safety Report 8499040-5 (Version None)
Quarter: 2012Q3

REPORT INFORMATION
  Report Type: 
  Country: None (occurrence: None)
  Receive Date: 20120710
  Receipt Date: 20120703
  Transmission Date: 20120928
  Serious: Yes (Hospitalization, Other)
  Sender: FDA-Public Use
  Company Number: FR-GE HEALTHCARE MEDICAL DIAGNOSTICS-OMPQ-NO-1206S-0625

PATIENT
  Sex: Male

DRUGS (3)
  1. OMNIPAQUE 140 [Suspect]
     Indication: PRODUCT USED FOR UNKNOWN INDICATION
     Route: 042
     Dates: start: 20120527, end: 20120527
  2. CIPROFLOXACIN HCL [Suspect]
     Indication: PROSTATITIS
     Dates: start: 20120525, end: 20120530
  3. RAMIPRIL [Suspect]
     Indication: PRODUCT USED FOR UNKNOWN INDICATION
     Route: 048
     Dates: end: 20120530

REACTIONS (4)
  - RENAL FAILURE ACUTE [None]
  - BLOOD CREATININE INCREASED [None]
  - CONFUSIONAL STATE [None]
  - THROMBOCYTOPENIA [None]
